FAERS Safety Report 7796865-6 (Version None)
Quarter: 2011Q4

REPORT INFORMATION
  Report Type: 
  Country: None (occurrence: None)
  Receive Date: 20111005
  Receipt Date: 20110923
  Transmission Date: 20120403
  Serious: No
  Sender: FDA-Public Use
  Company Number: US-B.I. PHARMACEUTICALS,INC./RIDGEFIELD-2011-BP-22818BP

PATIENT
  Sex: Female

DRUGS (9)
  1. PRADAXA [Suspect]
     Indication: ATRIAL FIBRILLATION
     Dosage: 300 MG
     Route: 048
     Dates: start: 20110601
  2. MAGNESIUM [Concomitant]
     Indication: SUPPLEMENTATION THERAPY
     Dosage: 300 MG
     Route: 048
     Dates: start: 20100101
  3. DIOVAN HCT [Concomitant]
     Indication: HYPERTENSION
     Route: 048
     Dates: start: 20060101
  4. VITAMIN D [Concomitant]
     Indication: SUPPLEMENTATION THERAPY
     Dosage: 1000 U
     Route: 048
     Dates: start: 20100101
  5. CRESTOR [Concomitant]
     Indication: BLOOD CHOLESTEROL INCREASED
     Dosage: 5 MG
     Route: 048
     Dates: start: 20110301
  6. AMIODARONE HCL [Concomitant]
     Indication: ATRIAL FIBRILLATION
     Dosage: 50 MG
     Route: 048
     Dates: start: 20080101
  7. CALCIUM CARBONATE [Concomitant]
     Indication: SUPPLEMENTATION THERAPY
     Dosage: 500 MG
     Route: 048
     Dates: start: 20100101
  8. BYSTOLIC [Concomitant]
     Indication: HYPERTENSION
     Dosage: 5 MG
     Route: 048
     Dates: start: 20090101
  9. VITAMIN B-12 [Concomitant]
     Indication: SUPPLEMENTATION THERAPY
     Dosage: 1000 MCG
     Route: 048
     Dates: start: 20100101

REACTIONS (2)
  - ALOPECIA [None]
  - BLOOD BLISTER [None]
